FAERS Safety Report 9935319 (Version 1)
Quarter: 2014Q1

REPORT INFORMATION
  Report Type: Spontaneous
  Country: GR (occurrence: GR)
  Receive Date: 20140228
  Receipt Date: 20140228
  Transmission Date: 20141002
  Serious: Yes (Hospitalization)
  Sender: FDA-Public Use
  Company Number: GR-PFIZER INC-2014055111

PATIENT
  Age: 32 Year
  Sex: Male

DRUGS (5)
  1. METHYLPREDNISOLONE [Suspect]
     Indication: RETINAL VASCULITIS
     Dosage: 500 MG/24H
     Route: 042
  2. ACYCLOVIR [Suspect]
     Indication: RETINAL VASCULITIS
     Dosage: 15 MG/KG/24H
     Route: 042
  3. ACYCLOVIR [Suspect]
     Dosage: UNK
     Route: 048
  4. GANCICLOVIR [Suspect]
     Indication: RETINAL VASCULITIS
     Dosage: 5 MG/KG/24H
     Route: 042
  5. GANCICLOVIR [Suspect]
     Dosage: UNK
     Route: 048

REACTIONS (3)
  - Iris neovascularisation [Unknown]
  - Retinal neovascularisation [Unknown]
  - Retinal degeneration [Unknown]
